FAERS Safety Report 18396748 (Version 2)
Quarter: 2020Q4

REPORT INFORMATION
  Report Type: Spontaneous
  Country: US (occurrence: US)
  Receive Date: 20201019
  Receipt Date: 20201120
  Transmission Date: 20210114
  Serious: No
  Sender: FDA-Public Use
  Company Number: US-009507513-2010USA002809

PATIENT
  Sex: Male

DRUGS (4)
  1. DULERA [Suspect]
     Active Substance: FORMOTEROL FUMARATE DIHYDRATE\MOMETASONE FUROATE
     Dosage: 1 DOSAGE FORM, QID (200/5 MICROGRAMS; TWICE IN THE MORNING AND TWICE IN THE NIGHT)
     Dates: start: 2020
  2. DULERA [Suspect]
     Active Substance: FORMOTEROL FUMARATE DIHYDRATE\MOMETASONE FUROATE
     Dosage: 1 DOSAGE FORM, QID (200/5 MICROGRAMS; TWICE IN THE MORNING AND TWICE IN THE NIGHT)
     Dates: start: 2020
  3. DULERA [Suspect]
     Active Substance: FORMOTEROL FUMARATE DIHYDRATE\MOMETASONE FUROATE
     Dosage: 1 DOSAGE FORM, QID (200/5 MICROGRAMS; TWICE IN THE MORNING AND TWICE IN THE NIGHT)
     Dates: start: 2020
  4. DULERA [Suspect]
     Active Substance: FORMOTEROL FUMARATE DIHYDRATE\MOMETASONE FUROATE
     Dosage: UNK
     Dates: start: 202010

REACTIONS (5)
  - Device malfunction [Unknown]
  - Chest discomfort [Recovered/Resolved]
  - Wrong technique in device usage process [Unknown]
  - Poor quality device used [Unknown]
  - Product dose omission issue [Unknown]

NARRATIVE: CASE EVENT DATE: 2020
